FAERS Safety Report 9162678 (Version 1)
Quarter: 2013Q1

REPORT INFORMATION
  Report Type: Spontaneous
  Country: FR (occurrence: FR)
  Receive Date: 20130314
  Receipt Date: 20130314
  Transmission Date: 20140127
  Serious: Yes (Hospitalization, Other)
  Sender: FDA-Public Use
  Company Number: FR-BRISTOL-MYERS SQUIBB COMPANY-17452251

PATIENT
  Age: 73 Year
  Sex: Male

DRUGS (6)
  1. COUMADINE [Suspect]
     Indication: PULMONARY EMBOLISM
     Route: 048
     Dates: start: 201210, end: 201211
  2. SURMONTIL [Concomitant]
     Indication: DEPRESSION
     Route: 048
  3. CYMBALTA [Concomitant]
     Indication: DEPRESSION
     Route: 048
  4. TAMSULOSIN [Concomitant]
     Indication: PROSTATIC ADENOMA
     Route: 048
  5. TRANXENE [Concomitant]
     Indication: DEPRESSION
     Route: 048
  6. NOCTAMIDE [Concomitant]
     Route: 048

REACTIONS (3)
  - Rectal haemorrhage [Recovered/Resolved]
  - Overdose [Unknown]
  - Rectal neoplasm [Unknown]
